FAERS Safety Report 23675120 (Version 1)
Quarter: 2024Q1

REPORT INFORMATION
  Report Type: Report from Study
  Country: CH (occurrence: CH)
  Receive Date: 20240326
  Receipt Date: 20240326
  Transmission Date: 20240409
  Serious: Yes (Hospitalization)
  Sender: FDA-Public Use
  Company Number: CH-ABBVIE-5359129

PATIENT
  Age: 74 Year
  Sex: Female

DRUGS (6)
  1. CARBIDOPA\LEVODOPA [Suspect]
     Active Substance: CARBIDOPA\LEVODOPA
     Indication: Parkinson^s disease
     Dosage: 2 CASSETTES/ DAY, MD: 7.5 ML, CRD: 3.8 ML/H, CRN:  2.3/2.5 ML/H, ED: 3.0 ML
     Route: 050
     Dates: start: 201805
  2. CARBIDOPA\LEVODOPA [Suspect]
     Active Substance: CARBIDOPA\LEVODOPA
     Dosage: MD: 7.5 ML, CRD: 4.4 ML/H, CRN:  2.7 ML/H, ED: 3.0 ML
     Route: 050
     Dates: start: 202308
  3. PRAMIPEXOLE [Suspect]
     Active Substance: PRAMIPEXOLE\PRAMIPEXOLE DIHYDROCHLORIDE
     Indication: Parkinson^s disease
     Route: 065
     Dates: start: 202308
  4. PRAMIPEXOLE [Suspect]
     Active Substance: PRAMIPEXOLE\PRAMIPEXOLE DIHYDROCHLORIDE
     Indication: Parkinson^s disease
     Route: 065
     Dates: start: 202308, end: 202308
  5. CLOZAPINE [Concomitant]
     Active Substance: CLOZAPINE
     Indication: Parkinson^s disease
     Dosage: 12.5 MILLIGRAM
     Dates: end: 202308
  6. CLOZAPINE [Concomitant]
     Active Substance: CLOZAPINE
     Indication: Parkinson^s disease
     Dosage: 50 MILLIGRAM
     Dates: start: 202308

REACTIONS (9)
  - Persecutory delusion [Unknown]
  - Hallucination, auditory [Recovered/Resolved]
  - Hallucination, visual [Recovered/Resolved]
  - Bradykinesia [Unknown]
  - On and off phenomenon [Recovering/Resolving]
  - Muscle spasms [Unknown]
  - Chest discomfort [Unknown]
  - Myalgia [Unknown]
  - Hallucination [Unknown]

NARRATIVE: CASE EVENT DATE: 20230801
